FAERS Safety Report 19097374 (Version 1)
Quarter: 2021Q2

REPORT INFORMATION
  Report Type: Spontaneous
  Country: US (occurrence: US)
  Receive Date: 20210406
  Receipt Date: 20210406
  Transmission Date: 20210717
  Serious: No
  Sender: FDA-Public Use
  Company Number: US-BAUSCH-BL-2021-008894

PATIENT
  Age: 77 Year
  Sex: Female

DRUGS (6)
  1. ROCKLATAN [Concomitant]
     Active Substance: LATANOPROST\NETARSUDIL MESYLATE
     Indication: GLAUCOMA
     Route: 047
     Dates: start: 202102, end: 202102
  2. LATANOPROST SANDOZ [Concomitant]
     Active Substance: LATANOPROST
     Route: 047
     Dates: start: 2021
  3. LATANOPROST OPHTHALMIC SOLUTION 0.005% [Suspect]
     Active Substance: LATANOPROST
     Indication: GLAUCOMA
     Route: 047
     Dates: start: 2013
  4. DORZOLAMIDE HYDROCHLORIDE AND TIMOLOL MALEATE OPHTHALMIC SOLN 2%/0.5% [Suspect]
     Active Substance: DORZOLAMIDE HYDROCHLORIDE\TIMOLOL MALEATE
     Indication: GLAUCOMA
     Route: 047
     Dates: start: 2013
  5. LATANOPROST SANDOZ [Concomitant]
     Active Substance: LATANOPROST
     Indication: GLAUCOMA
     Route: 047
     Dates: end: 202102
  6. BRIMONIDINE TARTRATE OPHTHALMIC SOLUTION (SANDOZ) [Concomitant]
     Indication: GLAUCOMA
     Route: 047
     Dates: start: 201911

REACTIONS (4)
  - Product storage error [Unknown]
  - Extra dose administered [Unknown]
  - Eye irritation [Unknown]
  - Therapeutic product effect incomplete [Unknown]

NARRATIVE: CASE EVENT DATE: 2021
